FAERS Safety Report 4948911-2 (Version None)
Quarter: 2006Q1

REPORT INFORMATION
  Report Type: 
  Country: None (occurrence: None)
  Receive Date: 20060321
  Receipt Date: 20060113
  Transmission Date: 20060701
  Serious: Yes (Other)
  Sender: FDA-Public Use
  Company Number: PHEH2006US00883

PATIENT

DRUGS (1)
  1. AREDIA [Suspect]

REACTIONS (2)
  - OSTEOPETROSIS [None]
  - TOOTH EXTRACTION [None]
